FAERS Safety Report 16250123 (Version 1)
Quarter: 2019Q2

REPORT INFORMATION
  Report Type: Spontaneous
  Country: US (occurrence: US)
  Receive Date: 20190429
  Receipt Date: 20190429
  Transmission Date: 20190711
  Serious: No
  Sender: FDA-Public Use
  Company Number: US-ABBVIE-18S-163-2556079-00

PATIENT
  Age: 25 Year
  Sex: Male

DRUGS (2)
  1. ANDROGEL [Suspect]
     Active Substance: TESTOSTERONE
     Indication: KLINEFELTER^S SYNDROME
     Dosage: 2 PUMPS DAILY
     Route: 061
     Dates: start: 201810, end: 20181109
  2. ANDROGEL [Suspect]
     Active Substance: TESTOSTERONE
     Dosage: ONE PUMP FOR ONE DAY
     Route: 061
     Dates: start: 20181109, end: 20181110

REACTIONS (6)
  - Hypersomnia [Not Recovered/Not Resolved]
  - Intentional product misuse [Recovered/Resolved]
  - Anger [Not Recovered/Not Resolved]
  - Impatience [Not Recovered/Not Resolved]
  - Insomnia [Not Recovered/Not Resolved]
  - Fatigue [Not Recovered/Not Resolved]

NARRATIVE: CASE EVENT DATE: 201810
